FAERS Safety Report 23570629 (Version 2)
Quarter: 2024Q1

REPORT INFORMATION
  Report Type: Spontaneous
  Country: PL (occurrence: PL)
  Receive Date: 20240227
  Receipt Date: 20240307
  Transmission Date: 20240409
  Serious: Yes (Other)
  Sender: FDA-Public Use
  Company Number: PL-BEH-2024168361

PATIENT
  Age: 62 Year
  Sex: Male

DRUGS (1)
  1. HUMAN IMMUNOGLOBULIN G [Suspect]
     Active Substance: HUMAN IMMUNOGLOBULIN G
     Indication: Cerebral amyloid angiopathy
     Dosage: UNK
     Route: 042

REACTIONS (4)
  - Renal failure [Unknown]
  - Pyrexia [Unknown]
  - Drug ineffective [Unknown]
  - Off label use [Unknown]
